FAERS Safety Report 10900776 (Version 1)
Quarter: 2015Q1

REPORT INFORMATION
  Report Type: Report from Study
  Country: CA (occurrence: None)
  Receive Date: 20150303
  Receipt Date: 20150303
  Transmission Date: 20150721
  Serious: Yes (Hospitalization)
  Sender: FDA-Public Use
  Company Number: 2015FE00530

PATIENT
  Age: 61 Year
  Sex: Male

DRUGS (4)
  1. VITAMIN D (ERGOCALCIFEROL) [Concomitant]
     Active Substance: ERGOCALCIFEROL
  2. BABY ASPIRIN (ACETYLSALICYLIC ACID) [Concomitant]
     Active Substance: ASPIRIN
  3. DEGARELIX (DEGARELIX) POWDER AND SOLVENT FOR SOLUTION FOR INJECTION [Suspect]
     Active Substance: DEGARELIX
     Indication: PROSTATE CANCER
     Route: 058
     Dates: start: 20140314, end: 20150123
  4. HORMONE BALANCE NATURAL HRT (CIMICIFUGA RACEMOSA, COLECALCIFEROL, IPRIFLAVONE, VITEX AGNUS-CASTUS) [Concomitant]

REACTIONS (8)
  - Injection site cellulitis [None]
  - Disease progression [None]
  - Injection site infection [None]
  - Injection site reaction [None]
  - Injection site swelling [None]
  - Injection site erythema [None]
  - Injection site inflammation [None]
  - Injection site pain [None]

NARRATIVE: CASE EVENT DATE: 20141216
